FAERS Safety Report 7621573-1 (Version None)
Quarter: 2011Q3

REPORT INFORMATION
  Report Type: 
  Country: None (occurrence: None)
  Receive Date: 20110719
  Receipt Date: 20110713
  Transmission Date: 20111222
  Serious: Yes (Hospitalization)
  Sender: FDA-Public Use
  Company Number: US-B.I. PHARMACEUTICALS,INC./RIDGEFIELD-2011-BP-14115BP

PATIENT
  Sex: Female

DRUGS (2)
  1. PRADAXA [Suspect]
     Dates: end: 20110515
  2. HEPARIN SODIUM [Concomitant]

REACTIONS (5)
  - HEPATIC ISCHAEMIA [None]
  - HAEMORRHAGE [None]
  - KLEBSIELLA TEST POSITIVE [None]
  - CARDIAC TAMPONADE [None]
  - VENTRICULAR TACHYCARDIA [None]
